FAERS Safety Report 18352318 (Version 1)
Quarter: 2020Q4

REPORT INFORMATION
  Report Type: Spontaneous
  Country: DE (occurrence: DE)
  Receive Date: 20201006
  Receipt Date: 20201006
  Transmission Date: 20210114
  Serious: Yes (Hospitalization)
  Sender: FDA-Public Use
  Company Number: DE-PURDUE-USA-2020-0168944

PATIENT
  Age: 84 Year
  Sex: Female

DRUGS (10)
  1. COLECALCIFEROL [Concomitant]
     Active Substance: CHOLECALCIFEROL
     Dosage: 20000 IU, WEEKLY [20000 IE / WOCHE, 1-0-0-0, TABLETTEN]
     Route: 048
  2. PANTOPRAZOLE [Concomitant]
     Active Substance: PANTOPRAZOLE
     Dosage: 20 MG, 1-0-0-0, TABLETTEN
     Route: 048
  3. SPIRIVA [Concomitant]
     Active Substance: TIOTROPIUM BROMIDE MONOHYDRATE
     Dosage: 10 MCG, DAILY [ 1-0-0-0, DOSIERAEROSOL]
     Route: 055
  4. IBEROGAST [Concomitant]
     Active Substance: HERBALS
     Dosage: UNK BEDARF, TROPFEN
     Route: 048
  5. RAMIPRIL. [Concomitant]
     Active Substance: RAMIPRIL
     Dosage: 1.25 MG, DAILY [ALSO REPORTED AS [STRENGTH] 2.5 MG, 0.5-0-0-0, TABLETTEN ]
     Route: 048
  6. ELOTRANS                           /00386201/ [Concomitant]
     Dosage: UNK [BIS ZU 2 BEUTEL AM TAG, BEUTEL]
  7. LACTULOSE. [Concomitant]
     Active Substance: LACTULOSE
     Dosage: 20 MG, DAILY [1-0-0-0, SIRUP]
     Route: 048
  8. NORSPAN [Suspect]
     Active Substance: BUPRENORPHINE
     Indication: PRODUCT USED FOR UNKNOWN INDICATION
     Dosage: 10 MCG, Q1H [STRENGHT 10MG , ALSO REPORTED AS 10 ?G/H, WECHSEL ALLE 7 D, PFLASTER TRANSDERMAL]
     Route: 062
  9. HYDROXYCHLOROQUINE [Concomitant]
     Active Substance: HYDROXYCHLOROQUINE
     Dosage: 200 MG, 1-0-0-0, TABLETTEN
     Route: 048
  10. METAMIZOLE [Concomitant]
     Active Substance: METAMIZOLE
     Dosage: 500 MG, Q8H [500 MG, 1-1-1-0, TABLETTEN]
     Route: 048

REACTIONS (4)
  - Abdominal pain upper [Unknown]
  - Vomiting [Unknown]
  - Product prescribing error [Unknown]
  - Electrolyte imbalance [Unknown]

NARRATIVE: CASE EVENT DATE: 20191119
